FAERS Safety Report 7678368-2 (Version None)
Quarter: 2011Q3

REPORT INFORMATION
  Report Type: 
  Country: None (occurrence: None)
  Receive Date: 20110811
  Receipt Date: 20110810
  Transmission Date: 20111222
  Serious: Yes (Other)
  Sender: FDA-Public Use
  Company Number: DE-ABBOTT-11P-062-0845396-00

PATIENT
  Sex: Female

DRUGS (6)
  1. METHOTREXATE [Concomitant]
     Indication: RHEUMATOID ARTHRITIS
  2. SPIRAPRIL [Concomitant]
     Indication: HYPERTENSION
  3. CAPTOPRIL [Concomitant]
     Indication: HYPERTENSION
  4. PREDNISOLONE [Concomitant]
     Indication: RHEUMATOID ARTHRITIS
  5. HUMIRA [Suspect]
     Indication: RHEUMATOID ARTHRITIS
     Route: 058
     Dates: start: 20080911, end: 20110701
  6. ETORICOXIB [Concomitant]
     Indication: RHEUMATOID ARTHRITIS

REACTIONS (2)
  - PLEURISY [None]
  - PNEUMONIA [None]
